FAERS Safety Report 7432005-0 (Version None)
Quarter: 2011Q2

REPORT INFORMATION
  Report Type: 
  Country: None (occurrence: None)
  Receive Date: 20110419
  Receipt Date: 20110419
  Transmission Date: 20111010
  Serious: Yes (Other)
  Sender: FDA-Public Use
  Company Number: None

PATIENT
  Sex: Male

DRUGS (1)
  1. HUMALOG [Suspect]
     Dosage: USE 70-100 UNITS VIA PUMP
     Dates: start: 20110121

REACTIONS (2)
  - INJECTION SITE INFECTION [None]
  - PRODUCT CONTAMINATION PHYSICAL [None]
